FAERS Safety Report 7518987-7 (Version None)
Quarter: 2011Q2

REPORT INFORMATION
  Report Type: 
  Country: None (occurrence: None)
  Receive Date: 20110523
  Receipt Date: 20110509
  Transmission Date: 20111010
  Serious: Yes (Hospitalization, Other)
  Sender: FDA-Public Use
  Company Number: 2011MA005702

PATIENT
  Age: 51 Year
  Sex: Male

DRUGS (1)
  1. MIRTAZAPINE [Suspect]
     Indication: DEPRESSION
     Dosage: 45 MG

REACTIONS (14)
  - PSYCHOTIC DISORDER [None]
  - ELEVATED MOOD [None]
  - FLIGHT OF IDEAS [None]
  - DELUSION [None]
  - CONDITION AGGRAVATED [None]
  - INSOMNIA [None]
  - DISTRACTIBILITY [None]
  - ANTIDEPRESSANT DRUG LEVEL DECREASED [None]
  - MANIA [None]
  - LOGORRHOEA [None]
  - AGGRESSION [None]
  - AGITATION [None]
  - PSYCHOMOTOR HYPERACTIVITY [None]
  - IRRITABILITY [None]
